FAERS Safety Report 11999242 (Version 2)
Quarter: 2016Q1

REPORT INFORMATION
  Report Type: Report from Study
  Country: US (occurrence: US)
  Receive Date: 20160204
  Receipt Date: 20160224
  Transmission Date: 20160526
  Serious: No
  Sender: FDA-Public Use
  Company Number: US-AMGEN-USASL2016010923

PATIENT
  Age: 53 Year
  Sex: Female

DRUGS (1)
  1. ENBREL [Suspect]
     Active Substance: ETANERCEPT
     Indication: RHEUMATOID ARTHRITIS
     Dosage: 50 MG, QWK
     Route: 065
     Dates: start: 20150126

REACTIONS (7)
  - Mood swings [Unknown]
  - Abnormal behaviour [Unknown]
  - Crying [Unknown]
  - Mood altered [Unknown]
  - Adverse drug reaction [Unknown]
  - Anger [Unknown]
  - Screaming [Unknown]

NARRATIVE: CASE EVENT DATE: 2016
